FAERS Safety Report 17283101 (Version 2)
Quarter: 2021Q2

REPORT INFORMATION
  Report Type: Spontaneous
  Country: CA (occurrence: CA)
  Receive Date: 20200117
  Receipt Date: 20210527
  Transmission Date: 20210716
  Serious: Yes (Death)
  Sender: FDA-Public Use
  Company Number: CA-PFIZER INC-2020022669

PATIENT
  Age: 72 Year
  Sex: Male

DRUGS (1)
  1. REVATIO [Suspect]
     Active Substance: SILDENAFIL CITRATE
     Indication: PULMONARY ARTERIAL HYPERTENSION
     Dosage: 20 MG, UNK
     Route: 048
     Dates: start: 20190626

REACTIONS (1)
  - Death [Fatal]

NARRATIVE: CASE EVENT DATE: 20200114
